FAERS Safety Report 16995975 (Version 1)
Quarter: 2019Q4

REPORT INFORMATION
  Report Type: Report from Study
  Country: None (occurrence: US)
  Receive Date: 20191105
  Receipt Date: 20191105
  Transmission Date: 20200122
  Serious: Yes (Other)
  Sender: FDA-Public Use
  Company Number: US-ABBVIE-19K-163-2983545-00

PATIENT
  Sex: Female

DRUGS (1)
  1. HUMIRA [Suspect]
     Active Substance: ADALIMUMAB
     Indication: CROHN^S DISEASE
     Route: 058

REACTIONS (5)
  - Systemic lupus erythematosus [Unknown]
  - Urticaria [Recovering/Resolving]
  - Rheumatoid arthritis [Unknown]
  - Gait disturbance [Unknown]
  - Pain in extremity [Unknown]
